FAERS Safety Report 4474184-3 (Version None)
Quarter: 2004Q4

REPORT INFORMATION
  Report Type: 
  Country: None (occurrence: None)
  Receive Date: 20041008
  Receipt Date: 20040115
  Transmission Date: 20050328
  Serious: Yes (Hospitalization)
  Sender: FDA-Public Use
  Company Number: RB-415-2004

PATIENT
  Age: 41 Year
  Sex: Male

DRUGS (1)
  1. BUPRENORPHINE HCL [Suspect]
     Indication: DRUG DEPENDENCE
     Dosage: 8 MG QD
     Route: 042
     Dates: end: 20021201

REACTIONS (3)
  - ENDOCARDITIS [None]
  - INTENTIONAL MISUSE [None]
  - MEDICATION ERROR [None]
